FAERS Safety Report 5176514-6 (Version None)
Quarter: 2006Q4

REPORT INFORMATION
  Report Type: 
  Country: None (occurrence: None)
  Receive Date: 20061215
  Receipt Date: 20061129
  Transmission Date: 20070319
  Serious: Yes (Hospitalization)
  Sender: FDA-Public Use
  Company Number: FR-BRISTOL-MYERS SQUIBB COMPANY-13597042

PATIENT
  Age: 63 Year
  Sex: Male

DRUGS (2)
  1. APROVEL [Suspect]
     Route: 048
     Dates: end: 20050623
  2. KETOPROFEN [Interacting]
     Dates: start: 20050621, end: 20050623

REACTIONS (3)
  - BLOOD CREATININE INCREASED [None]
  - DRUG INTERACTION [None]
  - RENAL FAILURE ACUTE [None]
